FAERS Safety Report 17215298 (Version 2)
Quarter: 2020Q1

REPORT INFORMATION
  Report Type: Spontaneous
  Country: US (occurrence: US)
  Receive Date: 20191230
  Receipt Date: 20200214
  Transmission Date: 20200409
  Serious: Yes (Other)
  Sender: FDA-Public Use
  Company Number: US-ABBVIE-19K-163-3206204-00

PATIENT
  Sex: Female

DRUGS (2)
  1. SYNTHROID [Suspect]
     Active Substance: LEVOTHYROXINE SODIUM
     Indication: HYPOTHYROIDISM
     Route: 048
     Dates: start: 2015, end: 2017
  2. HUMIRA [Suspect]
     Active Substance: ADALIMUMAB
     Indication: HIDRADENITIS
     Route: 058

REACTIONS (8)
  - Surgery [Unknown]
  - Mobility decreased [Unknown]
  - Fatigue [Unknown]
  - Surgery [Recovering/Resolving]
  - Madarosis [Unknown]
  - Surgery [Unknown]
  - Incorrect dose administered [Unknown]
  - Pain [Unknown]

NARRATIVE: CASE EVENT DATE: 201912
